FAERS Safety Report 7284251-7 (Version None)
Quarter: 2011Q1

REPORT INFORMATION
  Report Type: 
  Country: None (occurrence: None)
  Receive Date: 20110209
  Receipt Date: 20110131
  Transmission Date: 20110831
  Serious: Yes (Death, Other)
  Sender: FDA-Public Use
  Company Number: JP-AMGEN-JPNCT2010003619

PATIENT
  Age: 69 Year
  Sex: Male
  Weight: 38 kg

DRUGS (11)
  1. GASLON [Concomitant]
     Route: 048
  2. PYDOXAL [Concomitant]
     Route: 048
  3. OXINORM [Concomitant]
     Indication: PAIN
     Route: 048
  4. HYPEN [Concomitant]
     Route: 048
  5. SUNRYTHM [Concomitant]
     Route: 048
  6. PANITUMUMAB [Suspect]
     Indication: COLORECTAL CANCER METASTATIC
     Dosage: UNK, 2 TIMES/WK
     Route: 041
     Dates: start: 20101008, end: 20101022
  7. OXYCONTIN [Concomitant]
     Dosage: UNK UNK, 2 TIMES/WK
     Route: 048
  8. BETAMETHASONE [Concomitant]
     Route: 048
  9. GAMOFA D [Concomitant]
     Route: 048
  10. FERROUS CITRATE [Concomitant]
     Route: 048
  11. MAGMITT [Concomitant]
     Route: 048

REACTIONS (2)
  - PYREXIA [None]
  - INTERSTITIAL LUNG DISEASE [None]
